FAERS Safety Report 18266263 (Version 3)
Quarter: 2021Q1

REPORT INFORMATION
  Report Type: Spontaneous
  Country: US (occurrence: US)
  Receive Date: 20200915
  Receipt Date: 20210224
  Transmission Date: 20210419
  Serious: Yes (Death, Hospitalization, Other)
  Sender: FDA-Public Use
  Company Number: US-ASTRAZENECA-2020SF16760

PATIENT
  Age: 23989 Day
  Sex: Female

DRUGS (26)
  1. LOSARTAN. [Concomitant]
     Active Substance: LOSARTAN
  2. FUROSEMIDE. [Concomitant]
     Active Substance: FUROSEMIDE
  3. FERROUS SULF [Concomitant]
     Active Substance: FERROUS SULFATE
  4. CEFTRIAXONE SODIUM. [Concomitant]
     Active Substance: CEFTRIAXONE SODIUM
  5. DOXYCYCLINE. [Concomitant]
     Active Substance: DOXYCYCLINE
  6. MIDAZOLAM HYDROCHLORIDE. [Concomitant]
     Active Substance: MIDAZOLAM HYDROCHLORIDE
  7. KEFLEX [Concomitant]
     Active Substance: CEPHALEXIN
  8. KOMBIGLYZE XR [Suspect]
     Active Substance: METFORMIN HYDROCHLORIDE\SAXAGLIPTIN HYDROCHLORIDE
     Indication: TYPE 2 DIABETES MELLITUS
     Route: 048
     Dates: start: 201212
  9. LANTUS [Concomitant]
     Active Substance: INSULIN GLARGINE
  10. HYZAAR [Concomitant]
     Active Substance: HYDROCHLOROTHIAZIDE\LOSARTAN POTASSIUM
  11. IMODIUM [Concomitant]
     Active Substance: LOPERAMIDE HYDROCHLORIDE
  12. NITROGLYCERIN. [Concomitant]
     Active Substance: NITROGLYCERIN
  13. EPIPEN [Concomitant]
     Active Substance: EPINEPHRINE
  14. METHYLPREDNISOLONE. [Concomitant]
     Active Substance: METHYLPREDNISOLONE
  15. LEVAQUIN [Concomitant]
     Active Substance: LEVOFLOXACIN
  16. PENICILLIN [Concomitant]
     Active Substance: PENICILLIN
  17. KOMBIGLYZE XR [Suspect]
     Active Substance: METFORMIN HYDROCHLORIDE\SAXAGLIPTIN HYDROCHLORIDE
     Indication: TYPE 2 DIABETES MELLITUS
     Dosage: 2.5?1000 MG, ONE TABLET BY MOUTH TWICE DAILY
     Route: 048
     Dates: start: 20121205
  18. KOMBIGLYZE XR [Suspect]
     Active Substance: METFORMIN HYDROCHLORIDE\SAXAGLIPTIN HYDROCHLORIDE
     Indication: TYPE 2 DIABETES MELLITUS
     Dosage: 2.5?1000 MG
     Route: 048
     Dates: start: 20121205, end: 20130309
  19. NOVOLIN NOS [Concomitant]
     Active Substance: INSULIN HUMAN
  20. ASPIRIN. [Concomitant]
     Active Substance: ASPIRIN
  21. HYDROCORTISONE. [Concomitant]
     Active Substance: HYDROCORTISONE
  22. OFLOXACIN. [Concomitant]
     Active Substance: OFLOXACIN
  23. AMOXICILLIN. [Concomitant]
     Active Substance: AMOXICILLIN
  24. METFORMIN [Concomitant]
     Active Substance: METFORMIN HYDROCHLORIDE
  25. LIDOCAINE. [Concomitant]
     Active Substance: LIDOCAINE
  26. PLAVIX [Concomitant]
     Active Substance: CLOPIDOGREL BISULFATE

REACTIONS (6)
  - End stage renal disease [Fatal]
  - Diabetes mellitus inadequate control [Fatal]
  - Cardiac failure congestive [Unknown]
  - Acute respiratory failure [Unknown]
  - Hypertension [Fatal]
  - Cardiac failure [Unknown]

NARRATIVE: CASE EVENT DATE: 20130309
